FAERS Safety Report 8406062-9 (Version None)
Quarter: 2012Q2

REPORT INFORMATION
  Report Type: 
  Country: None (occurrence: None)
  Receive Date: 20120529
  Receipt Date: 20080901
  Transmission Date: 20120825
  Serious: Yes (Hospitalization)
  Sender: FDA-Public Use
  Company Number: 15691-JPN-07-0001

PATIENT
  Age: 83 Year
  Sex: Female
  Weight: 61.2 kg

DRUGS (12)
  1. POLLAKISU (OXYBUTYNIN HYDROCHLORIDE) [Concomitant]
  2. LANSOPRAZOLE [Concomitant]
  3. CYTOTEC [Concomitant]
  4. TORSEMIDE [Concomitant]
  5. TANATRIL (MIDAPRIL HYDROCHLORIDE) [Concomitant]
  6. ASPIRIN [Concomitant]
  7. OPC-41061 (TOLVAPTAN(V.4.1)) TABLET [Suspect]
     Indication: CARDIAC FAILURE CONGESTIVE
     Dosage: 15 MG, QD, ORAL
     Route: 048
     Dates: start: 20070703, end: 20080709
  8. WARFARIN SODIUM [Concomitant]
  9. FOSAMAC (ALENDRONATE SODIUM HYDRATE) [Concomitant]
  10. SELTOUCH (FELBINAC) [Concomitant]
  11. STICK ZENOL A (METHYLSALICYLATE GLYCYRRHETIC ACID COMBINED DRUG) [Concomitant]
  12. LASIX [Concomitant]

REACTIONS (1)
  - ATRIAL FIBRILLATION [None]
